FAERS Safety Report 7332324-2 (Version None)
Quarter: 2011Q1

REPORT INFORMATION
  Report Type: 
  Country: None (occurrence: None)
  Receive Date: 20110304
  Receipt Date: 20101007
  Transmission Date: 20110831
  Serious: Yes (Hospitalization)
  Sender: FDA-Public Use
  Company Number: A0886361A

PATIENT
  Sex: Male

DRUGS (1)
  1. AVANDIA [Suspect]
     Dosage: 4MG TWICE PER DAY
     Route: 048
     Dates: start: 20080101, end: 20100101

REACTIONS (6)
  - LIVER DISORDER [None]
  - CHEST PAIN [None]
  - DIZZINESS [None]
  - CARDIAC DISORDER [None]
  - ASTHENIA [None]
  - DYSPNOEA [None]
